FAERS Safety Report 19620170 (Version 1)
Quarter: 2021Q3

REPORT INFORMATION
  Report Type: Spontaneous
  Country: US (occurrence: US)
  Receive Date: 20210727
  Receipt Date: 20210727
  Transmission Date: 20211014
  Serious: Yes (Hospitalization)
  Sender: FDA-Public Use
  Company Number: None

PATIENT
  Age: 62 Year
  Sex: Female

DRUGS (13)
  1. GABAPENTIN. [Concomitant]
     Active Substance: GABAPENTIN
  2. METOPROL TAR [Concomitant]
  3. SEVELAMER [Concomitant]
     Active Substance: SEVELAMER
  4. ALLOPURINOL. [Concomitant]
     Active Substance: ALLOPURINOL
  5. SILDENAFIL. [Suspect]
     Active Substance: SILDENAFIL
     Indication: ERECTILE DYSFUNCTION
     Dosage: ?          OTHER FREQUENCY:THREE TIMES DAILY;?
     Route: 048
     Dates: start: 20210205
  6. AMLODIPINE [Concomitant]
     Active Substance: AMLODIPINE BESYLATE
  7. ELIQUIS [Concomitant]
     Active Substance: APIXABAN
  8. MELATONIN [Concomitant]
     Active Substance: MELATONIN
  9. CEPHALEXIN. [Concomitant]
     Active Substance: CEPHALEXIN
  10. COLCHICINE. [Concomitant]
     Active Substance: COLCHICINE
  11. ATORVASTATIN [Concomitant]
     Active Substance: ATORVASTATIN
  12. CALCITRIOL. [Concomitant]
     Active Substance: CALCITRIOL
  13. FUROSEMIDE. [Concomitant]
     Active Substance: FUROSEMIDE

REACTIONS (2)
  - Dialysis [None]
  - Cellulitis [None]

NARRATIVE: CASE EVENT DATE: 20210706
